FAERS Safety Report 10373834 (Version 1)
Quarter: 2014Q1

REPORT INFORMATION
  Report Type: Spontaneous
  Country: US (occurrence: None)
  Receive Date: 20140306
  Receipt Date: 20140306
  Transmission Date: 20141002
  Serious: Yes (Hospitalization, Other)
  Sender: FDA-Public Use
  Company Number: 163-21880-13094449

PATIENT
  Age: 66 Year
  Sex: Female

DRUGS (2)
  1. REVLIMID [Suspect]
     Indication: PLASMA CELL MYELOMA
     Route: 048
     Dates: start: 201308
  2. VELCADE (BORTEZOMIB) [Concomitant]

REACTIONS (8)
  - Myalgia [None]
  - Arthralgia [None]
  - Swelling face [None]
  - Dyspepsia [None]
  - Abdominal pain [None]
  - Hypotension [None]
  - Oxygen saturation decreased [None]
  - Oedema peripheral [None]
